FAERS Safety Report 6709335-0 (Version None)
Quarter: 2010Q2

REPORT INFORMATION
  Report Type: 
  Country: None (occurrence: None)
  Receive Date: 20100504
  Receipt Date: 20070212
  Transmission Date: 20101027
  Serious: Yes (Other)
  Sender: FDA-Public Use
  Company Number: PHBS2006NZ17836

PATIENT
  Sex: Female

DRUGS (1)
  1. ZOMETA [Suspect]
     Dosage: UNK
     Route: 065
     Dates: start: 20040901

REACTIONS (22)
  - CELLULITIS [None]
  - DEBRIDEMENT [None]
  - DENTAL CARIES [None]
  - DENTAL PLAQUE [None]
  - GINGIVAL INFECTION [None]
  - GINGIVAL SWELLING [None]
  - GINGIVITIS [None]
  - IMPAIRED HEALING [None]
  - LIGAMENT DISORDER [None]
  - LOOSE TOOTH [None]
  - OPEN WOUND [None]
  - ORAL MUCOSAL ERYTHEMA [None]
  - ORAL SURGERY [None]
  - OSTEONECROSIS [None]
  - PAIN [None]
  - PURULENT DISCHARGE [None]
  - SINUSITIS [None]
  - TOOTH DISCOLOURATION [None]
  - TOOTH EXTRACTION [None]
  - TOOTH INFECTION [None]
  - TOOTHACHE [None]
  - WOUND TREATMENT [None]
